FAERS Safety Report 9986706 (Version 1)
Quarter: 2014Q1

REPORT INFORMATION
  Report Type: Report from Study
  Country: US (occurrence: US)
  Receive Date: 20140307
  Receipt Date: 20140307
  Transmission Date: 20141002
  Serious: No
  Sender: FDA-Public Use
  Company Number: US-ABBVIE-13P-163-1074780-00

PATIENT
  Age: 64 Year
  Sex: Female

DRUGS (16)
  1. TRIAMCINOLONE [Concomitant]
     Indication: CARDIAC DISORDER
     Dosage: 37.5/25 MG
  2. ENTOCORT [Concomitant]
     Indication: CROHN^S DISEASE
     Dosage: IN AM
  3. ZANTAC [Concomitant]
     Indication: GASTROOESOPHAGEAL REFLUX DISEASE
  4. MERCAPTOPURINE [Concomitant]
     Indication: CROHN^S DISEASE
     Dosage: DAILY
  5. TRAMADOL [Concomitant]
     Indication: ARTHRITIS
  6. FLAGYL COMPAK [Concomitant]
     Indication: GASTRIC DISORDER
  7. IMMODIUM [Concomitant]
     Indication: DIARRHOEA
  8. IMMODIUM [Concomitant]
     Indication: CROHN^S DISEASE
  9. MULTIPLE EYE DROPS [Concomitant]
     Indication: ABNORMAL SENSATION IN EYE
  10. EYE LUBRICATION [Concomitant]
     Indication: ABNORMAL SENSATION IN EYE
  11. TYLENOL [Concomitant]
     Indication: ARTHRITIS
     Dosage: EVERY 4-6 HOURS AS NEEDED
  12. MULTIVITAMIN [Concomitant]
     Indication: PRODUCT USED FOR UNKNOWN INDICATION
  13. HUMIRA [Suspect]
     Indication: CROHN^S DISEASE
     Dates: start: 20121120
  14. LISINOPRIL [Concomitant]
     Indication: CARDIAC DISORDER
     Dosage: 25 MG DAILY
  15. SPIRONOLACTONE [Concomitant]
     Indication: CARDIAC DISORDER
     Dosage: 25 MG DAILY
  16. CARVEDILOL [Concomitant]
     Indication: CARDIAC DISORDER

REACTIONS (1)
  - Rash papular [Recovering/Resolving]
